FAERS Safety Report 11821673 (Version 1)
Quarter: 2015Q4

REPORT INFORMATION
  Report Type: Spontaneous
  Country: US (occurrence: US)
  Receive Date: 20151210
  Receipt Date: 20151210
  Transmission Date: 20160305
  Serious: Yes (Hospitalization)
  Sender: FDA-Public Use
  Company Number: US-JNJFOC-20150509328

PATIENT
  Age: 69 Year
  Sex: Male

DRUGS (7)
  1. AFLURIA [Concomitant]
     Active Substance: INFLUENZA VIRUS VACCINE TRIVALENT TYPE A+B AFLURIA
  2. TERAZOSIN [Concomitant]
     Active Substance: TERAZOSIN\TERAZOSIN HYDROCHLORIDE
  3. BROMHEXINE [Concomitant]
     Active Substance: BROMHEXINE
  4. METOPROLOL [Concomitant]
     Active Substance: METOPROLOL
  5. LEVAQUIN [Concomitant]
     Active Substance: LEVOFLOXACIN
  6. ALLOPURINOL. [Concomitant]
     Active Substance: ALLOPURINOL
  7. IMBRUVICA [Suspect]
     Active Substance: IBRUTINIB
     Indication: LYMPHOMA
     Route: 048
     Dates: start: 201502, end: 2015

REACTIONS (2)
  - Pneumonia [Unknown]
  - Off label use [Unknown]

NARRATIVE: CASE EVENT DATE: 201502
